FAERS Safety Report 7955607-1 (Version None)
Quarter: 2011Q4

REPORT INFORMATION
  Report Type: 
  Country: None (occurrence: None)
  Receive Date: 20111202
  Receipt Date: 20111124
  Transmission Date: 20120403
  Serious: Yes (Hospitalization)
  Sender: FDA-Public Use
  Company Number: BR-ASTRAZENECA-2011SE71649

PATIENT
  Age: 42 Year
  Sex: Male

DRUGS (1)
  1. ATACAND [Suspect]
     Indication: HYPERTENSION
     Dosage: ONCE DAILY
     Route: 048
     Dates: start: 20100101

REACTIONS (6)
  - WHEEZING [None]
  - DYSPNOEA [None]
  - STRESS [None]
  - PYREXIA [None]
  - WEIGHT DECREASED [None]
  - HYPOAESTHESIA [None]
